FAERS Safety Report 6507806-3 (Version None)
Quarter: 2009Q4

REPORT INFORMATION
  Report Type: 
  Country: None (occurrence: None)
  Receive Date: 20091221
  Receipt Date: 20091210
  Transmission Date: 20100525
  Serious: Yes (Death, Hospitalization)
  Sender: FDA-Public Use
  Company Number: FR-GENENTECH-295817

PATIENT
  Sex: Female

DRUGS (5)
  1. RITUXIMAB [Suspect]
     Indication: HEPATITIS C
     Dosage: 375 MG/M2, UNK
     Route: 042
     Dates: start: 20041125, end: 20041215
  2. RIBAVIRIN [Suspect]
     Indication: HEPATITIS C
     Dosage: UNK
     Route: 048
  3. CISPLATIN [Suspect]
     Indication: HEPATIC NEOPLASM MALIGNANT
     Dosage: UNK
     Route: 065
     Dates: start: 20050407
  4. ADRIAMYCIN PFS [Suspect]
     Indication: HEPATIC NEOPLASM MALIGNANT
     Dosage: UNK
     Route: 065
     Dates: start: 20050407
  5. PEG-INTRON [Concomitant]
     Dosage: 1.5 A?G/KG, 1/WEEK

REACTIONS (1)
  - HEPATIC NEOPLASM MALIGNANT [None]
